FAERS Safety Report 8309248-7 (Version None)
Quarter: 2012Q2

REPORT INFORMATION
  Report Type: 
  Country: None (occurrence: None)
  Receive Date: 20120424
  Receipt Date: 20120416
  Transmission Date: 20120825
  Serious: Yes (Death)
  Sender: FDA-Public Use
  Company Number: PHHY2012JP031943

PATIENT
  Age: 54 Year
  Sex: Male

DRUGS (4)
  1. PREDNISOLONE [Concomitant]
     Indication: SERUM SICKNESS
  2. METHYLPREDNISOLONE [Concomitant]
  3. ANTI-THYMOCYTE GLOBULIN RABBIT NOS [Suspect]
     Indication: APLASTIC ANAEMIA
     Dosage: 3.75 MG/KG, UNK
  4. CYCLOSPORINE [Suspect]
     Indication: APLASTIC ANAEMIA
     Dosage: 3 MG/KG, UNK

REACTIONS (9)
  - DIFFUSE LARGE B-CELL LYMPHOMA [None]
  - LIVER FUNCTION TEST ABNORMAL [None]
  - LYMPHOCYTIC INFILTRATION [None]
  - VIRAL LOAD INCREASED [None]
  - METABOLIC ACIDOSIS [None]
  - POST TRANSPLANT LYMPHOPROLIFERATIVE DISORDER [None]
  - PYREXIA [None]
  - CARDIOPULMONARY FAILURE [None]
  - LACTIC ACIDOSIS [None]
